FAERS Safety Report 6043746-4 (Version None)
Quarter: 2009Q1

REPORT INFORMATION
  Report Type: 
  Country: None (occurrence: None)
  Receive Date: 20090120
  Receipt Date: 20090111
  Transmission Date: 20090719
  Serious: Yes (Life-Threatening, Hospitalization)
  Sender: FDA-Public Use
  Company Number: PHEH2008US10431

PATIENT
  Sex: Female
  Weight: 42.177 kg

DRUGS (11)
  1. RECLAST [Suspect]
     Indication: OSTEOPOROSIS
     Dosage: 5 MG, ONCE/SINGLE
     Route: 042
     Dates: start: 20081112, end: 20081112
  2. ZANTAC [Concomitant]
     Dosage: 300 MG, PRN
     Route: 048
  3. ZYPREXA [Concomitant]
     Dosage: 2.5 MG, QHS
     Route: 048
  4. ATIVAN [Concomitant]
     Indication: ANXIETY
     Dosage: 0.5 MG, 2 TABLETS TID PRN
     Route: 048
  5. TYLENOL (CAPLET) [Concomitant]
     Indication: PAIN
     Dosage: 650 MG, Q4H, PRN
     Route: 048
  6. LOPRESSOR [Concomitant]
     Dosage: 25 MG QAM, 50 MG QPM
     Route: 048
  7. REMERON [Concomitant]
     Dosage: 15 MG, QHS
  8. CLARITIN [Concomitant]
     Dosage: 10 MG, UNK
     Route: 048
  9. PLAVIX [Concomitant]
     Dosage: 1 CAPSULE TWICE DAILY
     Route: 048
  10. ASPIRIN [Concomitant]
     Dosage: 81 MG, QD
     Route: 048
  11. PRILOSEC [Concomitant]
     Dosage: 40 MG, BID

REACTIONS (20)
  - ABDOMINAL PAIN [None]
  - AREFLEXIA [None]
  - ATRIAL FIBRILLATION [None]
  - BALANCE DISORDER [None]
  - CONFUSIONAL STATE [None]
  - COUGH [None]
  - CRANIAL NEUROPATHY [None]
  - DYSPHAGIA [None]
  - ENDOTRACHEAL INTUBATION [None]
  - GASTROINTESTINAL TUBE INSERTION [None]
  - GASTROSTOMY TUBE INSERTION [None]
  - HAEMATOMA [None]
  - LIVER FUNCTION TEST ABNORMAL [None]
  - MECHANICAL VENTILATION [None]
  - MUSCULAR WEAKNESS [None]
  - MYALGIA [None]
  - NEUROPATHY PERIPHERAL [None]
  - PNEUMONIA ASPIRATION [None]
  - SENSORY LOSS [None]
  - TACHYPNOEA [None]
